FAERS Safety Report 15704279 (Version 1)
Quarter: 2018Q4

REPORT INFORMATION
  Report Type: Spontaneous
  Country: US (occurrence: US)
  Receive Date: 20181127
  Receipt Date: 20181127
  Transmission Date: 20190205
  Serious: No
  Sender: FDA-Public Use
  Company Number: None

PATIENT
  Age: 58 Year
  Sex: Female

DRUGS (12)
  1. NORCO [Suspect]
     Active Substance: ACETAMINOPHEN\HYDROCODONE BITARTRATE
     Indication: PAIN
     Dosage: ?          OTHER STRENGTH:5/325;QUANTITY:1 PILL;?
     Route: 048
  2. ATENOLOL. [Concomitant]
     Active Substance: ATENOLOL
  3. METFORMIN [Concomitant]
     Active Substance: METFORMIN HYDROCHLORIDE
  4. ASPIRIN. [Concomitant]
     Active Substance: ASPIRIN
  5. LOSARTAN. [Concomitant]
     Active Substance: LOSARTAN
  6. BIOTIN [Concomitant]
     Active Substance: BIOTIN
  7. MA [Concomitant]
     Active Substance: METOCLOPRAMIDE HYDROCHLORIDE
  8. SIMVASTATIN. [Concomitant]
     Active Substance: SIMVASTATIN
  9. TART CHERRY [Concomitant]
  10. GLIMEPRIDE [Concomitant]
     Active Substance: GLIMEPIRIDE
  11. METHDONE [Concomitant]
  12. FLEXERIL [Concomitant]
     Active Substance: CYCLOBENZAPRINE HYDROCHLORIDE

REACTIONS (4)
  - Angina pectoris [None]
  - Product substitution issue [None]
  - Product dispensing error [None]
  - Pain in extremity [None]

NARRATIVE: CASE EVENT DATE: 20170731
